FAERS Safety Report 7942822-6 (Version None)
Quarter: 2011Q4

REPORT INFORMATION
  Report Type: 
  Country: None (occurrence: None)
  Receive Date: 20111128
  Receipt Date: 20111117
  Transmission Date: 20120403
  Serious: Yes (Hospitalization, Other)
  Sender: FDA-Public Use
  Company Number: MX-SANOFI-AVENTIS-2011SA076089

PATIENT
  Age: 59 Year
  Sex: Male
  Weight: 89 kg

DRUGS (6)
  1. ASPIRIN [Concomitant]
     Route: 048
     Dates: start: 20010101, end: 20080101
  2. DISGREN [Concomitant]
     Indication: THROMBOSIS PROPHYLAXIS
     Route: 048
     Dates: start: 20080101
  3. PRAVASTATIN [Concomitant]
     Route: 048
  4. LANTUS [Suspect]
     Indication: TYPE 2 DIABETES MELLITUS
     Dosage: DOSE: 5 IU IN THE MORNING AND 15 IU AT EVENING.
     Route: 058
     Dates: start: 20010101
  5. VITAMIN B COMPLEX CAP [Concomitant]
     Route: 048
  6. FOLIC ACID [Concomitant]
     Route: 048

REACTIONS (4)
  - DRUG ADMINISTRATION ERROR [None]
  - RENAL FAILURE [None]
  - HYPERTENSION [None]
  - OEDEMA PERIPHERAL [None]
